FAERS Safety Report 11970101 (Version 1)
Quarter: 2016Q1

REPORT INFORMATION
  Report Type: Spontaneous
  Country: US (occurrence: None)
  Receive Date: 20160126
  Receipt Date: 20160126
  Transmission Date: 20160526
  Serious: No
  Sender: FDA-Public Use
  Company Number: None

PATIENT
  Age: 91 Year
  Sex: Female
  Weight: 56.7 kg

DRUGS (1)
  1. CEFTRIAXONE. [Suspect]
     Active Substance: CEFTRIAXONE
     Indication: FURUNCLE
     Route: 042
     Dates: start: 20160120, end: 20160120

REACTIONS (1)
  - Pruritus [None]

NARRATIVE: CASE EVENT DATE: 20160120
